FAERS Safety Report 5282778-0 (Version None)
Quarter: 2007Q2

REPORT INFORMATION
  Report Type: 
  Country: None (occurrence: None)
  Receive Date: 20070402
  Receipt Date: 20070322
  Transmission Date: 20071010
  Serious: Yes (Other)
  Sender: FDA-Public Use
  Company Number: IT-SANOFI-SYNTHELABO-A06200700138

PATIENT
  Sex: Female

DRUGS (2)
  1. ELOXATIN [Suspect]
     Indication: COLON CANCER
     Dosage: 230 MG AS SINGLE CYCLE
     Route: 041
     Dates: start: 20070322, end: 20070322
  2. XELODA [Concomitant]
     Indication: COLON CANCER
     Dosage: UNK
     Route: 048

REACTIONS (2)
  - DYSPNOEA [None]
  - LARYNGOSPASM [None]
